FAERS Safety Report 16036343 (Version 1)
Quarter: 2019Q1

REPORT INFORMATION
  Report Type: Spontaneous
  Country: US (occurrence: US)
  Receive Date: 20190206
  Receipt Date: 20190206
  Transmission Date: 20190418
  Serious: No
  Sender: FDA-Public Use
  Company Number: None

PATIENT
  Age: 63 Year
  Sex: Male

DRUGS (1)
  1. STELARA [Suspect]
     Active Substance: USTEKINUMAB
     Route: 058
     Dates: start: 201802

REACTIONS (4)
  - Arthralgia [None]
  - Product dose omission [None]
  - Condition aggravated [None]
  - Manufacturing product shipping issue [None]

NARRATIVE: CASE EVENT DATE: 20190130
